FAERS Safety Report 25945429 (Version 1)
Quarter: 2025Q4

REPORT INFORMATION
  Report Type: Spontaneous
  Country: CA (occurrence: CA)
  Receive Date: 20251021
  Receipt Date: 20251021
  Transmission Date: 20260118
  Serious: Yes (Other)
  Sender: OTSUKA
  Company Number: CA-MMM-Otsuka-ZTAY074J

PATIENT
  Age: 38 Year
  Sex: Female
  Weight: 27.21 kg

DRUGS (3)
  1. ABILIFY [Interacting]
     Active Substance: ARIPIPRAZOLE
     Indication: Schizophrenia
     Dosage: UNK
     Route: 065
  2. ABILIFY [Interacting]
     Active Substance: ARIPIPRAZOLE
     Dosage: 20 MG
     Route: 065
  3. DIVALPROEX SODIUM [Interacting]
     Active Substance: DIVALPROEX SODIUM
     Indication: Product used for unknown indication
     Dosage: 1500 MG, DAILY (THREE RED PILLS, EACH 500 MG)
     Route: 065

REACTIONS (18)
  - Arrhythmia [Unknown]
  - Loss of consciousness [Recovering/Resolving]
  - Tardive dyskinesia [Unknown]
  - Neuroleptic malignant syndrome [Unknown]
  - Mental disorder [Unknown]
  - Confusional state [Unknown]
  - Heart rate increased [Unknown]
  - Malaise [Unknown]
  - Aggression [Unknown]
  - Body temperature increased [Unknown]
  - Jaundice [Unknown]
  - Gambling disorder [Unknown]
  - Hyperhidrosis [Unknown]
  - Weight increased [Unknown]
  - Drug interaction [Unknown]
  - Therapy interrupted [Unknown]
  - Overdose [Unknown]
  - Contraindicated product administered [Unknown]
